FAERS Safety Report 19111188 (Version 1)
Quarter: 2021Q2

REPORT INFORMATION
  Report Type: Spontaneous
  Country: US (occurrence: US)
  Receive Date: 20210408
  Receipt Date: 20210408
  Transmission Date: 20210717
  Serious: No
  Sender: FDA-Public Use
  Company Number: US-TEVA-2021-US-1897729

PATIENT
  Sex: Female

DRUGS (1)
  1. METOPROLOL SUCCINATE WATSON [Suspect]
     Active Substance: METOPROLOL SUCCINATE
     Route: 065
     Dates: start: 201008

REACTIONS (2)
  - Blood pressure increased [Unknown]
  - Drug ineffective [Unknown]

NARRATIVE: CASE EVENT DATE: 201008
